FAERS Safety Report 12575900 (Version 2)
Quarter: 2016Q3

REPORT INFORMATION
  Report Type: Spontaneous
  Country: PT (occurrence: PT)
  Receive Date: 20160720
  Receipt Date: 20160819
  Transmission Date: 20161109
  Serious: Yes (Other)
  Sender: FDA-Public Use
  Company Number: PT-FRESENIUS KABI-FK201604395

PATIENT
  Age: 71 Year
  Sex: Female
  Weight: 66 kg

DRUGS (9)
  1. HYDROCORTISONE. [Concomitant]
     Active Substance: HYDROCORTISONE
  2. CARBOPLATIN. [Concomitant]
     Active Substance: CARBOPLATIN
     Route: 042
  3. PREDNISOLONE. [Concomitant]
     Active Substance: PREDNISOLONE
  4. BROMAZEPAM [Concomitant]
     Active Substance: BROMAZEPAM
  5. ESCITALOPRAM [Concomitant]
     Active Substance: ESCITALOPRAM OXALATE
  6. IDEBENONE [Concomitant]
     Active Substance: IDEBENONE
  7. PACLITAXEL 6MG/ML CONCENTRATE FOR SOLUTION FOR INFUSION [Suspect]
     Active Substance: PACLITAXEL
     Indication: LUNG NEOPLASM
     Route: 042
     Dates: start: 20160211, end: 20160303
  8. ONDANSETRON [Concomitant]
     Active Substance: ONDANSETRON
     Route: 042
  9. CLEMASTINE [Concomitant]
     Active Substance: CLEMASTINE

REACTIONS (4)
  - Stridor [Recovered/Resolved]
  - Erythema [Recovered/Resolved]
  - Loss of consciousness [Recovered/Resolved]
  - Bladder sphincter atony [Recovered/Resolved]

NARRATIVE: CASE EVENT DATE: 20160303
